FAERS Safety Report 6167737-8 (Version None)
Quarter: 2009Q2

REPORT INFORMATION
  Report Type: 
  Country: None (occurrence: None)
  Receive Date: 20090427
  Receipt Date: 20090421
  Transmission Date: 20091009
  Serious: Yes (Other)
  Sender: FDA-Public Use
  Company Number: US-ASTRAZENECA-2009UW10063

PATIENT
  Age: 56 Year
  Sex: Female

DRUGS (4)
  1. MERREM I.V. [Suspect]
     Indication: ENTEROCOCCAL INFECTION
     Route: 042
  2. MERREM I.V. [Suspect]
     Indication: STAPHYLOCOCCAL INFECTION
     Route: 042
  3. MERREM I.V. [Suspect]
     Indication: ESCHERICHIA INFECTION
     Route: 042
  4. MERREM I.V. [Suspect]
     Indication: PERITONEAL INFECTION
     Route: 042

REACTIONS (1)
  - ANAPHYLACTIC REACTION [None]
